FAERS Safety Report 16168443 (Version 1)
Quarter: 2019Q2

REPORT INFORMATION
  Report Type: Spontaneous
  Country: US (occurrence: US)
  Receive Date: 20190405
  Receipt Date: 20190405
  Transmission Date: 20190711
  Serious: No
  Sender: FDA-Public Use
  Company Number: None

PATIENT
  Age: 50 Year
  Sex: Female
  Weight: 63 kg

DRUGS (9)
  1. VITAMIN C [Concomitant]
     Active Substance: ASCORBIC ACID
  2. PROBIOTIC [Concomitant]
     Active Substance: PROBIOTICS NOS
  3. SINGULAIR [Concomitant]
     Active Substance: MONTELUKAST SODIUM
  4. MISOPROSTOL GENERIC FOR CYTOTEC WHITE FRONT G 5008 [Suspect]
     Active Substance: MISOPROSTOL
     Indication: BIOPSY CERVIX
     Dosage: QUANTITY:1 TABLET(S);OTHER FREQUENCY:ONCE IN THE EVENIN;?
     Route: 067
     Dates: start: 20190403, end: 20190404
  5. VITAMIN B12 [Concomitant]
     Active Substance: CYANOCOBALAMIN
  6. MISOPROSTOL GENERIC FOR CYTOTEC WHITE FRONT G 5008 [Suspect]
     Active Substance: MISOPROSTOL
     Indication: SMEAR CERVIX
     Dosage: QUANTITY:1 TABLET(S);OTHER FREQUENCY:ONCE IN THE EVENIN;?
     Route: 067
     Dates: start: 20190403, end: 20190404
  7. VITAMIN D [Concomitant]
     Active Substance: VITAMIN D NOS
  8. SYMBICORT [Concomitant]
     Active Substance: BUDESONIDE\FORMOTEROL FUMARATE DIHYDRATE
  9. FISH OIL [Concomitant]
     Active Substance: FISH OIL

REACTIONS (7)
  - Pain [None]
  - Tremor [None]
  - Chills [None]
  - Hyperhidrosis [None]
  - Muscle spasms [None]
  - Uterine contractions abnormal [None]
  - Vomiting [None]

NARRATIVE: CASE EVENT DATE: 20190404
